FAERS Safety Report 9991623 (Version 3)
Quarter: 2014Q2

REPORT INFORMATION
  Report Type: Spontaneous
  Country: DK (occurrence: DE)
  Receive Date: 20140310
  Receipt Date: 20140516
  Transmission Date: 20141212
  Serious: Yes (Other)
  Sender: FDA-Public Use
  Company Number: DE-FRI-1000060419

PATIENT
  Age: 35 Year
  Sex: Female

DRUGS (6)
  1. CITALOPRAM [Suspect]
     Indication: POSTPARTUM DEPRESSION
     Dosage: 40 MG
     Dates: end: 20130831
  2. CITALOPRAM [Suspect]
     Dosage: 20 MG
     Dates: start: 20130901, end: 20140104
  3. ISICOM [Concomitant]
     Dosage: 4 DOSAGE FORMS PER DAY
  4. MOTILIUM [Concomitant]
     Dosage: 30 MG
     Route: 048
  5. CORNEREGEL [Concomitant]
     Dosage: 3 TIMES PER DAY
  6. BOTOX [Concomitant]
     Indication: MUSCLE SPASTICITY
     Dates: start: 2013, end: 201401

REACTIONS (1)
  - Drug withdrawal convulsions [Not Recovered/Not Resolved]
